FAERS Safety Report 8102274-2 (Version None)
Quarter: 2012Q1

REPORT INFORMATION
  Report Type: 
  Country: None (occurrence: None)
  Receive Date: 20120201
  Receipt Date: 20120127
  Transmission Date: 20120608
  Serious: No
  Sender: FDA-Public Use
  Company Number: US-PFIZER INC-2012023393

PATIENT
  Sex: Female
  Weight: 51.701 kg

DRUGS (3)
  1. BUSPAR [Concomitant]
     Dosage: 15MG 2 TABLETS ORALLY IN MORNING DAILY
     Route: 048
  2. EFFEXOR XR [Suspect]
     Indication: DEPRESSION
     Dosage: 75MG THREE EXTENDED RELEASE CAPSULES ORALLY IN MORNING DAILY
     Route: 048
     Dates: end: 20120124
  3. SEROQUEL [Concomitant]
     Indication: DEPRESSION
     Dosage: 100 MG, DAILY

REACTIONS (5)
  - INSOMNIA [None]
  - NERVOUSNESS [None]
  - WITHDRAWAL SYNDROME [None]
  - ANXIETY [None]
  - MOOD SWINGS [None]
